FAERS Safety Report 21062413 (Version 2)
Quarter: 2022Q3

REPORT INFORMATION
  Report Type: Other
  Country: US (occurrence: None)
  Receive Date: 20220711
  Receipt Date: 20220906
  Transmission Date: 20221027
  Serious: Yes (Other)
  Sender: FDA-Public Use
  Company Number: US-ROCHE-3133641

PATIENT
  Sex: Male

DRUGS (1)
  1. XELODA [Suspect]
     Active Substance: CAPECITABINE
     Indication: Colon cancer
     Dosage: TAKE 4 TABLETS BY MOUTH EVERY MORNING AND TAKE 3 TABLETS BY MOUTH EVERY EVENING ON MONDAY-FRIDAY
     Route: 048

REACTIONS (1)
  - Metastatic neoplasm [Unknown]
